FAERS Safety Report 25574387 (Version 3)
Quarter: 2025Q3

REPORT INFORMATION
  Report Type: Spontaneous
  Country: EU (occurrence: EU)
  Receive Date: 20250717
  Receipt Date: 20250725
  Transmission Date: 20251020
  Serious: Yes (Other)
  Sender: SANDOZ
  Company Number: EU-ABBVIE-5758550

PATIENT
  Age: 26 Year
  Sex: Male

DRUGS (22)
  1. ADALIMUMAB [Suspect]
     Active Substance: ADALIMUMAB
     Indication: Cystoid macular oedema
     Dosage: UNK, QW
     Route: 058
  2. ADALIMUMAB [Suspect]
     Active Substance: ADALIMUMAB
     Indication: Retinitis pigmentosa
     Route: 058
  3. ACETAZOLAMIDE [Suspect]
     Active Substance: ACETAZOLAMIDE
     Indication: Cystoid macular oedema
     Route: 048
  4. ACETAZOLAMIDE [Suspect]
     Active Substance: ACETAZOLAMIDE
     Indication: Retinitis pigmentosa
     Route: 048
  5. CYCLOSPORINE [Suspect]
     Active Substance: CYCLOSPORINE
     Indication: Cystoid macular oedema
     Route: 047
  6. CYCLOSPORINE [Suspect]
     Active Substance: CYCLOSPORINE
     Indication: Retinitis pigmentosa
     Route: 048
  7. DECADRON (DEXAMETHASONE SODIUM PHOSPHATE) [Suspect]
     Active Substance: DEXAMETHASONE SODIUM PHOSPHATE
     Indication: Retinitis pigmentosa
  8. DECADRON (DEXAMETHASONE SODIUM PHOSPHATE) [Suspect]
     Active Substance: DEXAMETHASONE SODIUM PHOSPHATE
     Indication: Retinitis pigmentosa
  9. DECADRON (DEXAMETHASONE SODIUM PHOSPHATE) [Suspect]
     Active Substance: DEXAMETHASONE SODIUM PHOSPHATE
     Indication: Cystoid macular oedema
  10. DECADRON (DEXAMETHASONE SODIUM PHOSPHATE) [Suspect]
     Active Substance: DEXAMETHASONE SODIUM PHOSPHATE
     Indication: Cystoid macular oedema
  11. DORZOLAMIDE [Suspect]
     Active Substance: DORZOLAMIDE
     Indication: Cystoid macular oedema
     Route: 065
  12. DORZOLAMIDE [Suspect]
     Active Substance: DORZOLAMIDE
     Indication: Retinitis pigmentosa
  13. IMURAN [Suspect]
     Active Substance: AZATHIOPRINE
     Indication: Cystoid macular oedema
     Route: 047
  14. IMURAN [Suspect]
     Active Substance: AZATHIOPRINE
     Indication: Retinitis pigmentosa
     Route: 048
  15. INFLIXIMAB [Suspect]
     Active Substance: INFLIXIMAB
     Indication: Retinitis pigmentosa
     Route: 047
  16. INFLIXIMAB [Suspect]
     Active Substance: INFLIXIMAB
     Route: 048
  17. METHOTREXATE [Suspect]
     Active Substance: METHOTREXATE
     Route: 047
  18. METHOTREXATE [Suspect]
     Active Substance: METHOTREXATE
     Indication: Retinitis pigmentosa
     Route: 048
  19. NEPAFENAC [Suspect]
     Active Substance: NEPAFENAC
     Indication: Retinitis pigmentosa
     Route: 047
  20. NEPAFENAC [Suspect]
     Active Substance: NEPAFENAC
     Indication: Cystoid macular oedema
  21. TRIAMCINOLONE ACETONIDE [Suspect]
     Active Substance: TRIAMCINOLONE ACETONIDE
     Indication: Cystoid macular oedema
     Route: 047
  22. TRIAMCINOLONE ACETONIDE [Suspect]
     Active Substance: TRIAMCINOLONE ACETONIDE
     Indication: Retinitis pigmentosa
     Route: 047

REACTIONS (3)
  - Cystoid macular oedema [Recovered/Resolved]
  - Therapeutic product effect incomplete [Unknown]
  - Drug ineffective for unapproved indication [Unknown]
